FAERS Safety Report 10599846 (Version 2)
Quarter: 2014Q4

REPORT INFORMATION
  Report Type: Spontaneous
  Country: PL (occurrence: PL)
  Receive Date: 20141121
  Receipt Date: 20141211
  Transmission Date: 20150529
  Serious: Yes (Other)
  Sender: FDA-Public Use
  Company Number: PL-PFIZER INC-2014317459

PATIENT
  Age: 44 Year
  Sex: Female
  Weight: 79 kg

DRUGS (3)
  1. DEPO-MEDROL [Suspect]
     Active Substance: METHYLPREDNISOLONE ACETATE
     Indication: PAIN IN EXTREMITY
     Dosage: 1 DF, UNK
     Route: 030
     Dates: start: 20140604, end: 20140604
  2. PYRALGINUM [Concomitant]
     Dosage: 1 DF, UNK
     Route: 042
     Dates: start: 20140604, end: 20140604
  3. NACL [Concomitant]
     Active Substance: SODIUM CHLORIDE
     Dosage: 0,9% 500ML, UNK
     Route: 042
     Dates: start: 20140604, end: 20140604

REACTIONS (6)
  - Blood pressure increased [Recovered/Resolved]
  - Dizziness [Recovered/Resolved]
  - Vomiting [Recovered/Resolved]
  - Syncope [Recovered/Resolved]
  - Rash [Recovered/Resolved]
  - Hyperhidrosis [Recovered/Resolved]

NARRATIVE: CASE EVENT DATE: 20140604
